FAERS Safety Report 24679553 (Version 3)
Quarter: 2024Q4

REPORT INFORMATION
  Report Type: Spontaneous
  Country: US (occurrence: US)
  Receive Date: 20241129
  Receipt Date: 20241219
  Transmission Date: 20250114
  Serious: Yes (Hospitalization, Other)
  Sender: BRISTOL-MYERS SQUIBB COMPANY
  Company Number: US-BRISTOL-MYERS SQUIBB COMPANY-2024-183453

PATIENT
  Age: 73 Year
  Sex: Male

DRUGS (2)
  1. LENALIDOMIDE [Suspect]
     Active Substance: LENALIDOMIDE
     Indication: Plasma cell myeloma
     Route: 048
     Dates: end: 202407
  2. LENALIDOMIDE [Suspect]
     Active Substance: LENALIDOMIDE
     Route: 048
     Dates: start: 202407

REACTIONS (7)
  - Atrial fibrillation [Recovered/Resolved]
  - Decreased appetite [Unknown]
  - Muscle tightness [Unknown]
  - Dizziness [Unknown]
  - Hypoaesthesia oral [Unknown]
  - Hypogeusia [Unknown]
  - Fatigue [Unknown]
